FAERS Safety Report 9357360 (Version 1)
Quarter: 2013Q2

REPORT INFORMATION
  Report Type: Spontaneous
  Country: US (occurrence: None)
  Receive Date: 20130617
  Receipt Date: 20130617
  Transmission Date: 20140414
  Serious: Yes (Other)
  Sender: FDA-Public Use
  Company Number: UTC-013852

PATIENT
  Sex: 0

DRUGS (1)
  1. TYVASCO [Suspect]

REACTIONS (1)
  - Device battery issue [None]
